FAERS Safety Report 8245655-9 (Version None)
Quarter: 2012Q1

REPORT INFORMATION
  Report Type: 
  Country: None (occurrence: None)
  Receive Date: 20120330
  Receipt Date: 20120316
  Transmission Date: 20120608
  Serious: No
  Sender: FDA-Public Use
  Company Number: US-BIOGENIDEC-2011BI014642

PATIENT
  Age: 66 Year
  Sex: Female

DRUGS (1)
  1. TYSABRI [Suspect]
     Indication: MULTIPLE SCLEROSIS
     Route: 042
     Dates: start: 20100602

REACTIONS (9)
  - DYSPNOEA [None]
  - HERPES OPHTHALMIC [None]
  - MALAISE [None]
  - CONFUSIONAL STATE [None]
  - COUGH [None]
  - WHEEZING [None]
  - BACK PAIN [None]
  - LOWER RESPIRATORY TRACT INFECTION [None]
  - FATIGUE [None]
